FAERS Safety Report 5008113-0 (Version None)
Quarter: 2006Q2

REPORT INFORMATION
  Report Type: 
  Country: None (occurrence: None)
  Receive Date: 20060404
  Receipt Date: 20050806
  Transmission Date: 20061013
  Serious: Yes (Other)
  Sender: FDA-Public Use
  Company Number: 2005104053

PATIENT
  Age: 47 Year
  Sex: Female
  Weight: 48.5349 kg

DRUGS (4)
  1. GEODON [Suspect]
     Indication: DEPRESSION
     Dosage: 20 MG (20 MG, 1 IN 1 D), ORAL
     Route: 048
     Dates: start: 20050620, end: 20050709
  2. COGENTIN [Suspect]
     Indication: EXTRAPYRAMIDAL DISORDER
     Dosage: (4 MG, UNKNOWN), ORAL
     Route: 048
     Dates: start: 20050708, end: 20050711
  3. SEROQUEL [Suspect]
     Indication: SLEEP DISORDER
     Dates: start: 20050620
  4. ZOLOFT [Concomitant]

REACTIONS (7)
  - ANXIETY [None]
  - DYSKINESIA [None]
  - DYSPNOEA [None]
  - DYSSTASIA [None]
  - EXTRAPYRAMIDAL DISORDER [None]
  - MUSCLE TIGHTNESS [None]
  - TREMOR [None]
